FAERS Safety Report 24412361 (Version 3)
Quarter: 2025Q1

REPORT INFORMATION
  Report Type: Spontaneous
  Country: US (occurrence: US)
  Receive Date: 20241008
  Receipt Date: 20250109
  Transmission Date: 20250409
  Serious: No
  Sender: PFIZER
  Company Number: US-PFIZER INC-202400270630

PATIENT
  Age: 72 Year
  Sex: Female

DRUGS (19)
  1. IBRANCE [Suspect]
     Active Substance: PALBOCICLIB
     Indication: Breast cancer female
     Route: 048
  2. ANASTROZOLE [Concomitant]
     Active Substance: ANASTROZOLE
  3. VITAMIN B COMPLEX [Concomitant]
     Active Substance: CYANOCOBALAMIN\DEXPANTHENOL\NIACINAMIDE\PYRIDOXINE HYDROCHLORIDE\RIBOFLAVIN 5^-PHOSPHATE SODIUM\THIA
  4. COLLAGEN [Concomitant]
     Active Substance: COLLAGEN
  5. VITAMINS NOS [Concomitant]
     Active Substance: VITAMINS
  6. VITAMIN C [Concomitant]
     Active Substance: ASCORBIC ACID
  7. SELENIUM [Concomitant]
     Active Substance: SELENIUM
  8. ZINC [Concomitant]
     Active Substance: ZINC
  9. MANGANESE [Concomitant]
     Active Substance: MANGANESE CHLORIDE
  10. MAGNESIUM [Concomitant]
     Active Substance: MAGNESIUM
  11. DIETARY SUPPLEMENT\HERBALS\MILK THISTLE [Concomitant]
     Active Substance: MILK THISTLE
  12. PROBIOTICS NOS [Concomitant]
     Active Substance: PROBIOTICS NOS
  13. LYSINE [Concomitant]
     Active Substance: LYSINE
  14. FISH OIL [Concomitant]
     Active Substance: FISH OIL
  15. KRILL OIL [Concomitant]
     Active Substance: DIETARY SUPPLEMENT\KRILL OIL
  16. GLUTATHIONE [Concomitant]
     Active Substance: GLUTATHIONE
  17. COENZYME Q10 [Concomitant]
     Active Substance: DIETARY SUPPLEMENT\UBIDECARENONE
  18. VITAMIN D NOS [Concomitant]
     Active Substance: CHOLECALCIFEROL\ERGOCALCIFEROL
  19. VITAMIN A [Concomitant]
     Active Substance: VITAMIN A

REACTIONS (1)
  - Fatigue [Not Recovered/Not Resolved]
